FAERS Safety Report 17757804 (Version 2)
Quarter: 2020Q2

REPORT INFORMATION
  Report Type: Spontaneous
  Country: SE (occurrence: SE)
  Receive Date: 20200507
  Receipt Date: 20200528
  Transmission Date: 20200714
  Serious: Yes (Other)
  Sender: FDA-Public Use
  Company Number: SE-BAYER-2020-071751

PATIENT
  Age: 72 Year
  Sex: Male

DRUGS (5)
  1. ALVEDON [Concomitant]
     Active Substance: ACETAMINOPHEN
     Dosage: 3 G, QD, 1 G FILM COATED TABLET
  2. CHLOROQUINE. [Suspect]
     Active Substance: CHLOROQUINE
     Indication: COVID-19
     Dosage: DAILY DOSE 1000 MG
     Dates: start: 20200331, end: 20200401
  3. ATORVASTATIN KRKA [Concomitant]
     Active Substance: ATORVASTATIN
     Dosage: 20 MG, QD
  4. ENALAPRIL COMP [Concomitant]
     Active Substance: ENALAPRIL MALEATE\HYDROCHLOROTHIAZIDE
     Dosage: 20 MG/12.5 MG TABLET
  5. CHLOROQUINE. [Suspect]
     Active Substance: CHLOROQUINE
     Indication: COVID-19
     Dosage: STRENGTH 250MG DOSE 4X1IN1, 2X2
     Dates: start: 20200330, end: 20200330

REACTIONS (1)
  - Electrocardiogram QT prolonged [Recovered/Resolved]

NARRATIVE: CASE EVENT DATE: 20200401
